FAERS Safety Report 17371293 (Version 1)
Quarter: 2020Q1

REPORT INFORMATION
  Report Type: Spontaneous
  Country: SE (occurrence: SE)
  Receive Date: 20200205
  Receipt Date: 20200205
  Transmission Date: 20200409
  Serious: Yes (Other)
  Sender: FDA-Public Use
  Company Number: SE-ACCORD-171757

PATIENT
  Age: 52 Year
  Sex: Male

DRUGS (5)
  1. NALTREXONE/NALTREXONE HYDROCHLORIDE [Suspect]
     Active Substance: NALTREXONE
     Indication: ALCOHOL PROBLEM
     Dosage: 50 MG 1X1
     Route: 048
     Dates: start: 20191105, end: 20191115
  2. FELODIPINE. [Concomitant]
     Active Substance: FELODIPINE
  3. CANDEMOX COMP [Concomitant]
     Active Substance: CANDESARTAN CILEXETIL\HYDROCHLOROTHIAZIDE
  4. CANDESARTAN. [Concomitant]
     Active Substance: CANDESARTAN
  5. IMDUR [Concomitant]
     Active Substance: ISOSORBIDE MONONITRATE

REACTIONS (1)
  - Diplopia [Recovered/Resolved]

NARRATIVE: CASE EVENT DATE: 201911
